FAERS Safety Report 17362195 (Version 2)
Quarter: 2020Q1

REPORT INFORMATION
  Report Type: Report from Study
  Country: US (occurrence: US)
  Receive Date: 20200203
  Receipt Date: 20200205
  Transmission Date: 20200409
  Serious: Yes (Hospitalization)
  Sender: FDA-Public Use
  Company Number: US-EISAI MEDICAL RESEARCH-EC-2019-066971

PATIENT
  Age: 63 Year
  Sex: Male

DRUGS (2)
  1. LENVIMA [Suspect]
     Active Substance: LENVATINIB
     Route: 048
     Dates: start: 20191213, end: 202001
  2. LENVIMA [Suspect]
     Active Substance: LENVATINIB
     Indication: HEPATOCELLULAR CARCINOMA
     Route: 048
     Dates: start: 20191202, end: 20191209

REACTIONS (13)
  - Food intolerance [Unknown]
  - Abdominal distension [Unknown]
  - Blood urine [Unknown]
  - Abdominal distension [Unknown]
  - Peripheral swelling [Unknown]
  - Hypophagia [Not Recovered/Not Resolved]
  - Blood potassium decreased [Unknown]
  - Feeling abnormal [Unknown]
  - Diarrhoea [Unknown]
  - Vomiting [Unknown]
  - Lethargy [Unknown]
  - Weight decreased [Unknown]
  - Swelling face [Unknown]

NARRATIVE: CASE EVENT DATE: 201912
